FAERS Safety Report 11822590 (Version 1)
Quarter: 2015Q4

REPORT INFORMATION
  Report Type: Spontaneous
  Country: US (occurrence: US)
  Receive Date: 20151210
  Receipt Date: 20151210
  Transmission Date: 20160305
  Serious: No
  Sender: FDA-Public Use
  Company Number: US-JNJFOC-20150505824

PATIENT
  Sex: Female

DRUGS (7)
  1. VITAMIN B12 [Concomitant]
     Active Substance: CYANOCOBALAMIN
  2. VITAMIN D [Concomitant]
     Active Substance: CHOLECALCIFEROL
  3. REFRESH [Concomitant]
     Active Substance: UNSPECIFIED INGREDIENT
  4. PRAVASTATIN [Concomitant]
     Active Substance: PRAVASTATIN\PRAVASTATIN SODIUM
  5. BIOTIN [Concomitant]
     Active Substance: BIOTIN
  6. CITRACAL [Concomitant]
     Active Substance: CALCIUM CITRATE
  7. IMBRUVICA [Suspect]
     Active Substance: IBRUTINIB
     Indication: LYMPHOMA
     Route: 048
     Dates: start: 20150120, end: 2015

REACTIONS (6)
  - Dyspepsia [Unknown]
  - Somnolence [Recovered/Resolved]
  - Nausea [Unknown]
  - Fatigue [Recovering/Resolving]
  - Pruritus [Unknown]
  - Joint swelling [Recovering/Resolving]

NARRATIVE: CASE EVENT DATE: 2015
